FAERS Safety Report 9242571 (Version 2)
Quarter: 2013Q2

REPORT INFORMATION
  Report Type: Spontaneous
  Country: US (occurrence: US)
  Receive Date: 20130419
  Receipt Date: 20130528
  Transmission Date: 20140414
  Serious: Yes (Other)
  Sender: FDA-Public Use
  Company Number: US-ASTRAZENECA-2013SE22123

PATIENT
  Age: 20883 Day
  Sex: Male

DRUGS (1)
  1. BRILINTA [Suspect]
     Indication: CARDIOVASCULAR DISORDER
     Route: 048
     Dates: end: 201303

REACTIONS (3)
  - Contusion [Recovered/Resolved]
  - Confusional state [Recovered/Resolved]
  - Adverse event [Unknown]
